FAERS Safety Report 20390447 (Version 2)
Quarter: 2022Q1

REPORT INFORMATION
  Report Type: Spontaneous
  Country: IL (occurrence: IL)
  Receive Date: 20220128
  Receipt Date: 20220303
  Transmission Date: 20220424
  Serious: Yes (Death, Other)
  Sender: FDA-Public Use
  Company Number: IL-009507513-2201ISR006344

PATIENT
  Age: 69 Year
  Sex: Female

DRUGS (1)
  1. KEYTRUDA [Suspect]
     Active Substance: PEMBROLIZUMAB
     Indication: Non-small cell lung cancer
     Dosage: UNK

REACTIONS (6)
  - Death [Fatal]
  - Pulmonary oedema [Not Recovered/Not Resolved]
  - Tumour obstruction [Unknown]
  - Bronchial obstruction [Unknown]
  - Malignant neoplasm progression [Unknown]
  - Lung disorder [Unknown]

NARRATIVE: CASE EVENT DATE: 20220227
